FAERS Safety Report 7085859-4 (Version None)
Quarter: 2010Q4

REPORT INFORMATION
  Report Type: 
  Country: None (occurrence: None)
  Receive Date: 20101105
  Receipt Date: 20101028
  Transmission Date: 20110411
  Serious: Yes (Hospitalization)
  Sender: FDA-Public Use
  Company Number: ES-ROCHE-737611

PATIENT
  Age: 61 Year
  Sex: Female

DRUGS (1)
  1. BONIVA [Suspect]
     Indication: OSTEOPOROSIS
     Dosage: FORM: FILM COATED TABLETS
     Route: 048
     Dates: start: 20090714, end: 20100510

REACTIONS (1)
  - ALVEOLITIS ALLERGIC [None]
